FAERS Safety Report 13318866 (Version 1)
Quarter: 2017Q1

REPORT INFORMATION
  Report Type: Report from Study
  Country: US (occurrence: US)
  Receive Date: 20170310
  Receipt Date: 20170310
  Transmission Date: 20170428
  Serious: No
  Sender: FDA-Public Use
  Company Number: US-JNJFOC-20170303130

PATIENT
  Age: 63 Year
  Sex: Male
  Weight: 127.01 kg

DRUGS (2)
  1. INVOKAMET [Suspect]
     Active Substance: CANAGLIFLOZIN\METFORMIN HYDROCHLORIDE
     Indication: PRODUCT USED FOR UNKNOWN INDICATION
     Dosage: 150/1000 MG
     Route: 048
  2. INVOKAMET XR [Suspect]
     Active Substance: CANAGLIFLOZIN\METFORMIN HYDROCHLORIDE
     Indication: DIABETES MELLITUS
     Dosage: DOSE: 150/1000MG
     Route: 048
     Dates: start: 20170227, end: 2017

REACTIONS (4)
  - Pollakiuria [Not Recovered/Not Resolved]
  - Fungal infection [Unknown]
  - Blood glucose increased [Not Recovered/Not Resolved]
  - Medication error [Unknown]

NARRATIVE: CASE EVENT DATE: 20170228
